FAERS Safety Report 10263636 (Version 1)
Quarter: 2014Q2

REPORT INFORMATION
  Report Type: Spontaneous
  Country: AU (occurrence: AU)
  Receive Date: 20140626
  Receipt Date: 20140626
  Transmission Date: 20141212
  Serious: Yes (Hospitalization)
  Sender: FDA-Public Use
  Company Number: AU-MYLANLABS-2014S1014659

PATIENT
  Age: 82 Year
  Sex: Male

DRUGS (6)
  1. RIFAMPICIN [Suspect]
     Indication: TUBERCULOSIS
     Route: 065
  2. WARFARIN [Interacting]
     Indication: ANTICOAGULANT THERAPY
     Dosage: 4MG DAILY
     Route: 065
  3. WARFARIN [Interacting]
     Indication: ANTICOAGULANT THERAPY
     Dosage: 12 MG DAILY
     Route: 065
  4. ISONIAZID [Concomitant]
     Indication: TUBERCULOSIS
     Route: 065
  5. PYRAZINAMIDE [Concomitant]
     Indication: TUBERCULOSIS
     Route: 065
  6. ETHAMBUTOL [Concomitant]
     Indication: TUBERCULOSIS
     Route: 065

REACTIONS (2)
  - Coagulation time prolonged [Unknown]
  - Drug interaction [Unknown]
